FAERS Safety Report 6826834-1 (Version None)
Quarter: 2010Q2

REPORT INFORMATION
  Report Type: 
  Country: None (occurrence: None)
  Receive Date: 20100520
  Receipt Date: 20090416
  Transmission Date: 20101027
  Serious: Yes (Other)
  Sender: FDA-Public Use
  Company Number: 2009199732

PATIENT
  Age: 54 Year
  Sex: Female

DRUGS (3)
  1. PROVERA [Suspect]
     Indication: MENOPAUSE
     Dosage: 2.5/0.5 MG
     Dates: start: 19860101, end: 19970101
  2. PREMARIN [Suspect]
     Indication: MENOPAUSE
     Dosage: 0.625/1.25 MG
     Dates: start: 19860101, end: 19970101
  3. PREMPRO [Suspect]
     Indication: MENOPAUSE
     Dates: start: 19970101, end: 20000101

REACTIONS (1)
  - BREAST CANCER FEMALE [None]
